FAERS Safety Report 15832502 (Version 1)
Quarter: 2018Q4

REPORT INFORMATION
  Report Type: Spontaneous
  Country: US (occurrence: US)
  Receive Date: 20181219
  Receipt Date: 20181219
  Transmission Date: 20190205
  Serious: Yes (Hospitalization)
  Sender: FDA-Public Use
  Company Number: None

PATIENT
  Age: 58 Year
  Sex: Male
  Weight: 89.63 kg

DRUGS (22)
  1. CORGARD [Concomitant]
     Active Substance: NADOLOL
  2. FLEXERIL [Concomitant]
     Active Substance: CYCLOBENZAPRINE HYDROCHLORIDE
  3. GENERIAC [Concomitant]
  4. KENALOG [Concomitant]
     Active Substance: TRIAMCINOLONE ACETONIDE
  5. ESCITALOPRAM [Concomitant]
     Active Substance: ESCITALOPRAM OXALATE
  6. METFORMIN [Concomitant]
     Active Substance: METFORMIN HYDROCHLORIDE
  7. ZEPATIER [Suspect]
     Active Substance: ELBASVIR\GRAZOPREVIR
     Indication: HEPATITIS C
     Dosage: ?          OTHER DOSE:1 TAB;?
     Route: 048
     Dates: start: 20170719, end: 20171107
  8. LASIX [Concomitant]
     Active Substance: FUROSEMIDE
  9. LANTUS [Concomitant]
     Active Substance: INSULIN GLARGINE
  10. FERROUS SULFATE. [Concomitant]
     Active Substance: FERROUS SULFATE
  11. ALBUTEROL. [Concomitant]
     Active Substance: ALBUTEROL
  12. BACTROBAN [Concomitant]
     Active Substance: MUPIROCIN\MUPIROCIN CALCIUM
  13. SOFOBUVIR 400MG [Suspect]
     Active Substance: SOFOSBUVIR
     Dosage: ?          OTHER DOSE:1 TAB;?
     Route: 048
     Dates: start: 20170719, end: 20171107
  14. BACLOFEN. [Concomitant]
     Active Substance: BACLOFEN
  15. CELEXA [Concomitant]
     Active Substance: CITALOPRAM HYDROBROMIDE
  16. NICOTINE. [Concomitant]
     Active Substance: NICOTINE
  17. RISPERDAL [Concomitant]
     Active Substance: RISPERIDONE
  18. ALDACTONE [Concomitant]
     Active Substance: SPIRONOLACTONE
  19. PROTONIX [Concomitant]
     Active Substance: PANTOPRAZOLE SODIUM
  20. HYDROCORTISONE. [Concomitant]
     Active Substance: HYDROCORTISONE
  21. LIDOCAINE. [Concomitant]
     Active Substance: LIDOCAINE
  22. CIPRO [Concomitant]
     Active Substance: CIPROFLOXACIN HYDROCHLORIDE

REACTIONS (1)
  - Mental status changes [None]

NARRATIVE: CASE EVENT DATE: 20171105
